FAERS Safety Report 7039397-5 (Version None)
Quarter: 2010Q3

REPORT INFORMATION
  Report Type: 
  Country: None (occurrence: None)
  Receive Date: 20100929
  Receipt Date: 20100824
  Transmission Date: 20110219
  Serious: No
  Sender: FDA-Public Use
  Company Number: US-WYE-H15451910

PATIENT
  Age: 55 Year
  Sex: Female
  Weight: 52.21 kg

DRUGS (11)
  1. PRISTIQ [Suspect]
     Indication: DEPRESSION
     Dosage: 50 MG 1X PER 1 DAY, ORAL
     Route: 048
     Dates: start: 20100515, end: 20100527
  2. SYNTHROID [Concomitant]
  3. XANAX [Concomitant]
  4. SPIRONOLACTONE [Concomitant]
  5. TRAZODONE HCL [Concomitant]
  6. SINGULAIR [Concomitant]
  7. REGLAN [Concomitant]
  8. LOMOTIL [Concomitant]
  9. LOTRONEX [Concomitant]
  10. AMBIEN CR [Concomitant]
  11. RITALIN [Concomitant]

REACTIONS (8)
  - ABDOMINAL PAIN UPPER [None]
  - CONSTIPATION [None]
  - DECREASED APPETITE [None]
  - DIARRHOEA [None]
  - INSOMNIA [None]
  - NERVOUSNESS [None]
  - PALPITATIONS [None]
  - TREMOR [None]
